FAERS Safety Report 21985723 (Version 1)
Quarter: 2023Q1

REPORT INFORMATION
  Report Type: Spontaneous
  Country: PT (occurrence: PT)
  Receive Date: 20230213
  Receipt Date: 20230213
  Transmission Date: 20230418
  Serious: Yes (Other)
  Sender: FDA-Public Use
  Company Number: PT-PFIZER INC-202300014002

PATIENT
  Age: 19 Year

DRUGS (10)
  1. LEVETIRACETAM [Suspect]
     Active Substance: LEVETIRACETAM
     Indication: Tonic clonic movements
     Dosage: 4 G, DAILY (MAXIMUM DOSE)
     Route: 065
  2. LEVETIRACETAM [Suspect]
     Active Substance: LEVETIRACETAM
     Dosage: 1 GRAM (1 G)
     Route: 065
  3. VALPROATE SODIUM [Concomitant]
     Active Substance: VALPROATE SODIUM
     Dosage: 2 G/50 ML TO 2.1 ML/H
     Route: 065
  4. TRANEXAMIC ACID [Concomitant]
     Active Substance: TRANEXAMIC ACID
     Dosage: 250 MILLIGRAM (250 MG, TOTAL DOSE)
     Route: 037
  5. MIDAZOLAM [Concomitant]
     Active Substance: MIDAZOLAM
     Indication: Sedative therapy
     Dosage: UNK
     Route: 065
  6. ROCURONIUM [Concomitant]
     Active Substance: ROCURONIUM BROMIDE
     Dosage: 6 UG/KG/MIN
     Route: 065
  7. CLEMASTINE [Concomitant]
     Active Substance: CLEMASTINE
     Indication: Erythema
     Dosage: 2 MILLIGRAM (2 MG)
     Route: 065
  8. PROPOFOL [Concomitant]
     Active Substance: PROPOFOL
     Indication: Sedative therapy
     Dosage: UNK
     Route: 065
  9. DIAZEPAM [Concomitant]
     Active Substance: DIAZEPAM
     Indication: Tonic clonic movements
     Dosage: 10 MILLIGRAM (10 MG)
     Route: 065
  10. HYDROCORTISONE [Concomitant]
     Active Substance: HYDROCORTISONE
     Indication: Erythema
     Dosage: 200 MILLIGRAM (200 MG)
     Route: 065

REACTIONS (1)
  - Drug ineffective [Recovered/Resolved]
